FAERS Safety Report 9028676 (Version 1)
Quarter: 2013Q1

REPORT INFORMATION
  Report Type: Spontaneous
  Country: JP (occurrence: JP)
  Receive Date: 20130124
  Receipt Date: 20130124
  Transmission Date: 20140127
  Serious: Yes (Hospitalization, Other)
  Sender: FDA-Public Use
  Company Number: PHHY2012JP112937

PATIENT
  Age: 48 Year
  Sex: Male

DRUGS (5)
  1. TEGRETOL [Suspect]
     Indication: TRIGEMINAL NEURALGIA
     Dosage: 100 MG, DAILY
     Route: 048
     Dates: start: 20120919, end: 20120919
  2. TEGRETOL [Suspect]
     Dosage: 100 MG, BID
     Route: 048
     Dates: start: 20120920, end: 20120923
  3. TEGRETOL [Suspect]
     Dosage: 300MG DAILY (ONE TABLET IN THE MORNING AND TWO TABLETS IN THE EVENING
     Route: 048
     Dates: start: 20120924, end: 20120927
  4. TEGRETOL [Suspect]
     Dosage: 100 MG, DAILY
     Route: 048
     Dates: start: 20120928, end: 20121026
  5. TEGRETOL [Suspect]
     Dosage: 200 MG, BID
     Route: 048
     Dates: start: 20121027, end: 20121105

REACTIONS (3)
  - Eczema [Recovering/Resolving]
  - Toxic skin eruption [Recovering/Resolving]
  - Visual impairment [Unknown]
